FAERS Safety Report 7479536-5 (Version None)
Quarter: 2011Q2

REPORT INFORMATION
  Report Type: 
  Country: None (occurrence: None)
  Receive Date: 20110513
  Receipt Date: 20110504
  Transmission Date: 20111010
  Serious: Yes (Other)
  Sender: FDA-Public Use
  Company Number: US-ASTRAZENECA-2010SE49741

PATIENT
  Age: 57 Year
  Sex: Female

DRUGS (3)
  1. ZOMIG [Suspect]
     Route: 048
  2. POLIO [Concomitant]
  3. ZOFRAN [Concomitant]

REACTIONS (6)
  - HYPOAESTHESIA FACIAL [None]
  - HYPOAESTHESIA [None]
  - MIGRAINE [None]
  - ROAD TRAFFIC ACCIDENT [None]
  - DRUG DOSE OMISSION [None]
  - POST POLIO SYNDROME [None]
